FAERS Safety Report 8014674-X (Version None)
Quarter: 2011Q4

REPORT INFORMATION
  Report Type: 
  Country: None (occurrence: None)
  Receive Date: 20111229
  Receipt Date: 20111219
  Transmission Date: 20120403
  Serious: Yes (Hospitalization, Other)
  Sender: FDA-Public Use
  Company Number: US-CELGENEUS-163-20785-11073067

PATIENT
  Sex: Female

DRUGS (1)
  1. THALOMID [Suspect]
     Indication: MULTIPLE MYELOMA
     Dosage: 100 MILLIGRAM
     Route: 048
     Dates: start: 20110707, end: 20110712

REACTIONS (9)
  - OEDEMA PERIPHERAL [None]
  - ASTHENIA [None]
  - BLOOD CALCIUM INCREASED [None]
  - HYPOXIA [None]
  - BLOOD PHOSPHORUS INCREASED [None]
  - BLOOD CREATININE INCREASED [None]
  - BLOOD POTASSIUM INCREASED [None]
  - TENDERNESS [None]
  - ERYTHEMA [None]
